FAERS Safety Report 10334926 (Version 8)
Quarter: 2020Q2

REPORT INFORMATION
  Report Type: Report from Study
  Country: AU (occurrence: AU)
  Receive Date: 20140723
  Receipt Date: 20200515
  Transmission Date: 20200713
  Serious: Yes (Hospitalization, Other)
  Sender: FDA-Public Use
  Company Number: AU-JNJFOC-20140712715

PATIENT
  Sex: Male

DRUGS (1)
  1. REMICADE [Suspect]
     Active Substance: INFLIXIMAB
     Indication: PSORIASIS
     Route: 042
     Dates: start: 20071021

REACTIONS (5)
  - Weight decreased [Recovering/Resolving]
  - Psoriasis [Unknown]
  - Oesophageal cancer metastatic [Unknown]
  - Pancreatic carcinoma metastatic [Recovered/Resolved]
  - Hepatic cancer [Unknown]
